FAERS Safety Report 16342061 (Version 1)
Quarter: 2019Q3

REPORT INFORMATION
  Report Type: Spontaneous
  Country: US (occurrence: US)
  Receive Date: 20190521
  Receipt Date: 20190521
  Transmission Date: 20191004
  Serious: Yes (Disabling, Other)
  Sender: FDA-Public Use
  Company Number: None

PATIENT
  Age: 12 Year
  Sex: Male
  Weight: 96.75 kg

DRUGS (3)
  1. METHYLIN [Suspect]
     Active Substance: METHYLPHENIDATE HYDROCHLORIDE
     Indication: ATTENTION DEFICIT/HYPERACTIVITY DISORDER
     Dosage: ?          QUANTITY:3 TEASPOON(S);?
     Route: 048
  2. DAYTRANA [Suspect]
     Active Substance: METHYLPHENIDATE
     Indication: ATTENTION DEFICIT/HYPERACTIVITY DISORDER
     Dosage: ?          QUANTITY:30 PATCH(ES);?
     Route: 062
  3. REMERON [Suspect]
     Active Substance: MIRTAZAPINE

REACTIONS (4)
  - Gynaecomastia [None]
  - Glaucoma [None]
  - Breast mass [None]
  - Product use in unapproved indication [None]

NARRATIVE: CASE EVENT DATE: 20080104
